FAERS Safety Report 20313443 (Version 1)
Quarter: 2022Q1

REPORT INFORMATION
  Report Type: Spontaneous
  Country: US (occurrence: US)
  Receive Date: 20220109
  Receipt Date: 20220109
  Transmission Date: 20220423
  Serious: No
  Sender: FDA-Public Use
  Company Number: US-SA-SAC20211231000247

PATIENT
  Age: 51 Year
  Sex: Female

DRUGS (6)
  1. DUPIXENT [Suspect]
     Active Substance: DUPILUMAB
     Indication: Dermatitis atopic
     Dosage: 300 MG, QOW
     Route: 058
     Dates: start: 20180210
  2. NALTREXONE [Concomitant]
     Active Substance: NALTREXONE
  3. ORACEA [DOXYCYCLINE] [Concomitant]
  4. PREMARIN [Concomitant]
     Active Substance: ESTROGENS, CONJUGATED
     Dosage: UNK
  5. SOOLANTRA [Concomitant]
     Active Substance: IVERMECTIN
     Dosage: UNK
  6. TOPICORT [Concomitant]
     Active Substance: DESOXIMETASONE

REACTIONS (1)
  - Dermatitis atopic [Unknown]
